FAERS Safety Report 8915449 (Version 1)
Quarter: 2012Q4

REPORT INFORMATION
  Report Type: 
  Country: US (occurrence: US)
  Receive Date: 20121119
  Receipt Date: 20121119
  Transmission Date: 20130627
  Serious: No
  Sender: FDA-Public Use
  Company Number: US-BAYER-2012-120675

PATIENT
  Age: 28 Year
  Sex: Female
  Weight: 81.63 kg

DRUGS (1)
  1. ALEVE CAPLET/TABLET,MIDOL EXTENDED RELIEF CAPLET [Suspect]
     Indication: TOOTHACHE
     Dosage: 2 DF, PRN
     Route: 048

REACTIONS (1)
  - Ocular hyperaemia [Not Recovered/Not Resolved]
